FAERS Safety Report 6090365-X (Version None)
Quarter: 2009Q1

REPORT INFORMATION
  Report Type: 
  Country: None (occurrence: None)
  Receive Date: 20090224
  Receipt Date: 20090216
  Transmission Date: 20090719
  Serious: Yes (Other)
  Sender: FDA-Public Use
  Company Number: DE-GILEAD-2008-0018077

PATIENT
  Sex: Male
  Weight: 83 kg

DRUGS (12)
  1. VIREAD [Suspect]
     Indication: HEPATITIS B
     Route: 048
     Dates: start: 20060401, end: 20060601
  2. HEPSERA [Suspect]
     Indication: HEPATITIS B
  3. ENTECAVIR [Concomitant]
     Indication: HEPATITIS B
     Route: 048
     Dates: start: 20070606
  4. LAMIVUDINE [Concomitant]
  5. LORZAN [Concomitant]
     Indication: HYPERTENSION
     Route: 048
  6. OMEP [Concomitant]
     Indication: GASTRITIS
     Route: 048
  7. RAMIPRIL [Concomitant]
     Indication: HYPERTENSION
     Route: 048
  8. BISOPROLOL [Concomitant]
     Indication: HYPERTENSION
     Route: 048
  9. PROPAFENONE HCL [Concomitant]
     Indication: ATRIAL FIBRILLATION
     Route: 048
  10. RENAGEL [Concomitant]
     Indication: RENAL FAILURE
     Route: 048
  11. VITAMIN D3 [Concomitant]
     Indication: RENAL FAILURE
     Route: 048
  12. NEO RECORMON [Concomitant]
     Indication: NEPHROGENIC ANAEMIA
     Route: 058

REACTIONS (5)
  - CREATININE RENAL CLEARANCE DECREASED [None]
  - DIARRHOEA [None]
  - NAUSEA [None]
  - THERAPEUTIC RESPONSE DECREASED [None]
  - VOMITING [None]
